FAERS Safety Report 7104382-1 (Version None)
Quarter: 2010Q4

REPORT INFORMATION
  Report Type: 
  Country: None (occurrence: None)
  Receive Date: 20101115
  Receipt Date: 20101102
  Transmission Date: 20110411
  Serious: Yes (Hospitalization, Other)
  Sender: FDA-Public Use
  Company Number: PHHY2010IL75323

PATIENT
  Age: 72 Year
  Sex: Female

DRUGS (1)
  1. ACLASTA [Suspect]
     Indication: OSTEOPOROSIS
     Dosage: UNK
     Route: 042
     Dates: start: 20100608

REACTIONS (6)
  - DRY MOUTH [None]
  - INFLUENZA LIKE ILLNESS [None]
  - MYALGIA [None]
  - ORAL FUNGAL INFECTION [None]
  - PYREXIA [None]
  - SINUSITIS [None]
